FAERS Safety Report 7340734-2 (Version None)
Quarter: 2011Q1

REPORT INFORMATION
  Report Type: 
  Country: None (occurrence: None)
  Receive Date: 20110309
  Receipt Date: 20110225
  Transmission Date: 20110831
  Serious: Yes (Other)
  Sender: FDA-Public Use
  Company Number: US-SANOFI-AVENTIS-2011SA012611

PATIENT
  Age: 62 Year
  Sex: Male

DRUGS (10)
  1. TAXOL [Suspect]
     Route: 065
     Dates: start: 20101001, end: 20110101
  2. ALBUTEROL [Concomitant]
  3. ADRENERGICS, INHALANTS [Concomitant]
  4. CORTICOSTEROID NOS [Concomitant]
  5. CARBOPLATIN [Suspect]
     Route: 065
     Dates: start: 20101001, end: 20110101
  6. FENTANYL [Concomitant]
  7. PENTOXIFYLLINE [Concomitant]
  8. NITRGLYCERIN TRANSDERMAL SYSTEM [Concomitant]
  9. PLAVIX [Suspect]
     Route: 048
     Dates: end: 20110101
  10. FOLIC ACID [Concomitant]

REACTIONS (7)
  - COLON CANCER [None]
  - SKIN NECROSIS [None]
  - NECROSIS ISCHAEMIC [None]
  - PAIN IN EXTREMITY [None]
  - NON-SMALL CELL LUNG CANCER [None]
  - SKIN DISCOLOURATION [None]
  - DISEASE PRODROMAL STAGE [None]
